FAERS Safety Report 5987471-4 (Version None)
Quarter: 2008Q4

REPORT INFORMATION
  Report Type: 
  Country: None (occurrence: None)
  Receive Date: 20081209
  Receipt Date: 20081204
  Transmission Date: 20090506
  Serious: Yes (Hospitalization)
  Sender: FDA-Public Use
  Company Number: JP-EISAI MEDICAL RESEARCH-E2090-00588-SPO-JP

PATIENT
  Sex: Female

DRUGS (4)
  1. EXCEGRAN [Suspect]
     Indication: EPILEPSY
     Route: 048
     Dates: start: 20081010, end: 20081107
  2. EXCEGRAN [Suspect]
     Indication: PETIT MAL EPILEPSY
  3. DEPAKENE [Concomitant]
     Indication: EPILEPSY
     Route: 048
     Dates: start: 19970523, end: 20081010
  4. DEPAKENE [Concomitant]
     Route: 048
     Dates: start: 20081107

REACTIONS (20)
  - ALANINE AMINOTRANSFERASE INCREASED [None]
  - ASPARTATE AMINOTRANSFERASE INCREASED [None]
  - AUTOIMMUNE DISORDER [None]
  - BILIARY CIRRHOSIS PRIMARY [None]
  - BLOOD LACTATE DEHYDROGENASE INCREASED [None]
  - COLLAGEN-VASCULAR DISEASE [None]
  - DECREASED APPETITE [None]
  - DERMATOMYOSITIS [None]
  - EOSINOPHILIA [None]
  - ERYTHEMA [None]
  - HEPATIC FUNCTION ABNORMAL [None]
  - LYMPHOCYTE STIMULATION TEST POSITIVE [None]
  - MALAISE [None]
  - MOUTH ULCERATION [None]
  - OEDEMA PERIPHERAL [None]
  - RASH [None]
  - SCAB [None]
  - STOMATITIS [None]
  - SYSTEMIC LUPUS ERYTHEMATOSUS [None]
  - VIRAL INFECTION [None]
